FAERS Safety Report 11536334 (Version 1)
Quarter: 2015Q3

REPORT INFORMATION
  Report Type: Spontaneous
  Country: TR (occurrence: TR)
  Receive Date: 20150922
  Receipt Date: 20150922
  Transmission Date: 20151125
  Serious: Yes (Life-Threatening)
  Sender: FDA-Public Use
  Company Number: TR-009507513-1509TUR007995

PATIENT
  Sex: Male

DRUGS (4)
  1. NOXAFIL [Suspect]
     Active Substance: POSACONAZOLE
     Indication: ASPERGILLUS INFECTION
     Dosage: 800 MG, UNK
     Route: 048
     Dates: start: 201409
  2. ACLOVIR [Concomitant]
  3. TARGOCID [Concomitant]
     Active Substance: TEICOPLANIN
  4. TIENAM 500 MG IV ENJEKTABL FLAKON [Concomitant]

REACTIONS (3)
  - Mucormycosis [Recovering/Resolving]
  - Drug ineffective [Recovering/Resolving]
  - Product quality issue [Unknown]

NARRATIVE: CASE EVENT DATE: 20150831
